FAERS Safety Report 11349896 (Version 1)
Quarter: 2015Q3

REPORT INFORMATION
  Report Type: Report from Study
  Country: GB (occurrence: GB)
  Receive Date: 20150807
  Receipt Date: 20150807
  Transmission Date: 20151125
  Serious: Yes (Death, Hospitalization)
  Sender: FDA-Public Use
  Company Number: GB-ABBVIE-15K-167-1440890-00

PATIENT
  Sex: Male

DRUGS (1)
  1. HUMIRA [Suspect]
     Active Substance: ADALIMUMAB
     Indication: RHEUMATOID ARTHRITIS
     Route: 058
     Dates: start: 20041115, end: 20060710

REACTIONS (6)
  - Cardiac failure chronic [Fatal]
  - Myocardial ischaemia [Fatal]
  - Pulmonary oedema [Fatal]
  - Pulmonary fibrosis [Fatal]
  - Chronic obstructive pulmonary disease [Fatal]
  - Rheumatoid arthritis [Fatal]
